FAERS Safety Report 8268030-X (Version None)
Quarter: 2012Q2

REPORT INFORMATION
  Report Type: 
  Country: None (occurrence: None)
  Receive Date: 20120409
  Receipt Date: 20120402
  Transmission Date: 20120825
  Serious: Yes (Hospitalization)
  Sender: FDA-Public Use
  Company Number: DE-ASTRAZENECA-2012SE18715

PATIENT
  Age: 872 Month
  Sex: Male
  Weight: 63 kg

DRUGS (3)
  1. BRILIQUE [Suspect]
     Indication: STENT PLACEMENT
     Route: 048
     Dates: start: 20120307
  2. BRILIQUE [Suspect]
     Indication: CORONARY ARTERY DISEASE
     Route: 048
     Dates: start: 20120307
  3. BRILIQUE [Suspect]
     Indication: IN-STENT ARTERIAL RESTENOSIS
     Route: 048
     Dates: start: 20120307

REACTIONS (4)
  - DYSPNOEA [None]
  - ANXIETY DISORDER [None]
  - ANGINA PECTORIS [None]
  - HYPERTENSIVE CRISIS [None]
